FAERS Safety Report 5506053-1 (Version None)
Quarter: 2007Q4

REPORT INFORMATION
  Report Type: 
  Country: None (occurrence: None)
  Receive Date: 20071102
  Receipt Date: 20071102
  Transmission Date: 20080405
  Serious: Yes (Hospitalization)
  Sender: FDA-Public Use
  Company Number: None

PATIENT
  Age: 80 Year
  Sex: Male

DRUGS (3)
  1. PROMETHAZINE [Suspect]
     Indication: NAUSEA
     Dosage: 25MG QID PO
     Route: 048
     Dates: start: 20070816, end: 20071030
  2. PROMETHAZINE [Suspect]
     Indication: SLEEP DISORDER
     Dosage: 25MG QID PO
     Route: 048
     Dates: start: 20070816, end: 20071030
  3. ZOLPIDEM TARTRATE [Suspect]
     Dosage: 10MG HS PO
     Route: 048
     Dates: start: 20071018, end: 20071030

REACTIONS (2)
  - CONFUSIONAL STATE [None]
  - MENTAL STATUS CHANGES [None]
